FAERS Safety Report 5916888-9 (Version None)
Quarter: 2008Q4

REPORT INFORMATION
  Report Type: 
  Country: None (occurrence: None)
  Receive Date: 20081013
  Receipt Date: 20081006
  Transmission Date: 20090506
  Serious: Yes (Other)
  Sender: FDA-Public Use
  Company Number: US-JNJCH-2008051433

PATIENT
  Age: 55 Year
  Sex: Male
  Weight: 99.8 kg

DRUGS (1)
  1. NEOSPORIN [Suspect]
     Indication: SKIN DISORDER
     Dosage: TEXT:A DIME SIZE TWO TO THREE TIMES A DAY
     Route: 061

REACTIONS (1)
  - NEOPLASM MALIGNANT [None]
